FAERS Safety Report 5981844-1 (Version None)
Quarter: 2008Q4

REPORT INFORMATION
  Report Type: 
  Country: None (occurrence: None)
  Receive Date: 20081205
  Receipt Date: 20081127
  Transmission Date: 20090506
  Serious: Yes (Hospitalization, Other)
  Sender: FDA-Public Use
  Company Number: FR-ABBOTT-08P-056-0490034-00

PATIENT
  Sex: Male

DRUGS (16)
  1. NAXY [Suspect]
     Indication: BRONCHOPNEUMONIA
     Route: 048
     Dates: start: 20081006, end: 20081012
  2. NAXY [Suspect]
     Indication: SUPERINFECTION
  3. FLUINDIONE [Interacting]
     Indication: DRUG USE FOR UNKNOWN INDICATION
     Dosage: DAILY (10 MG AND 15 MG ALTERNATIVELY)
     Route: 048
     Dates: start: 20081009, end: 20081010
  4. FLUINDIONE [Interacting]
     Dates: start: 20081013
  5. TRANDOLAPRIL [Concomitant]
     Indication: DRUG USE FOR UNKNOWN INDICATION
     Dosage: DOSAGE DECREASED
  6. PRAVASTATIN [Concomitant]
     Indication: DRUG USE FOR UNKNOWN INDICATION
  7. AMIODARONE HCL [Concomitant]
     Indication: DRUG USE FOR UNKNOWN INDICATION
  8. PARACETAMOL, CAFFEINE, DEXTROPROPOXYPHENE [Concomitant]
     Indication: DRUG USE FOR UNKNOWN INDICATION
     Dosage: 2 TABLETS 3 TIMES DAILY
     Route: 048
  9. LEVOTHYROXINE SODIUM [Concomitant]
     Indication: DRUG USE FOR UNKNOWN INDICATION
  10. METFORMIN HCL [Concomitant]
     Indication: DRUG USE FOR UNKNOWN INDICATION
  11. ACETYLCYSTEINE, TUAMINOHEPTANE, BENZALKONIUM CHLORURE [Concomitant]
     Indication: DRUG USE FOR UNKNOWN INDICATION
     Route: 045
     Dates: start: 20081006, end: 20081012
  12. CITALOPRAM HYDROBROMIDE [Concomitant]
     Indication: DRUG USE FOR UNKNOWN INDICATION
     Route: 048
  13. DOMPERIDONE MALEATE [Concomitant]
     Indication: DRUG USE FOR UNKNOWN INDICATION
  14. ZOLPIDEM [Concomitant]
     Indication: DRUG USE FOR UNKNOWN INDICATION
  15. GINKGO BILOBA EXTRACT [Concomitant]
     Indication: DRUG USE FOR UNKNOWN INDICATION
  16. SULFATE FERREUX, ACIDE FOLIQUE [Concomitant]
     Indication: DRUG USE FOR UNKNOWN INDICATION

REACTIONS (20)
  - ATRIOVENTRICULAR BLOCK FIRST DEGREE [None]
  - CARDIAC FAILURE [None]
  - CARDIOMEGALY [None]
  - CHEST X-RAY ABNORMAL [None]
  - COUGH [None]
  - DRUG INTERACTION [None]
  - DYSPNOEA [None]
  - ELECTROCARDIOGRAM Q WAVE ABNORMAL [None]
  - ELECTROCARDIOGRAM ST SEGMENT ABNORMAL [None]
  - HAEMOPTYSIS [None]
  - INFLAMMATION [None]
  - INTERNATIONAL NORMALISED RATIO INCREASED [None]
  - LEUKOCYTOSIS [None]
  - LUNG DISORDER [None]
  - OVERDOSE [None]
  - PROTHROMBIN TIME SHORTENED [None]
  - RALES [None]
  - RESPIRATORY ALKALOSIS [None]
  - SPUTUM DISCOLOURED [None]
  - TACHYPNOEA [None]
